FAERS Safety Report 15867861 (Version 1)
Quarter: 2019Q1

REPORT INFORMATION
  Report Type: Spontaneous
  Country: US (occurrence: US)
  Receive Date: 20190125
  Receipt Date: 20190125
  Transmission Date: 20190417
  Serious: Yes (Other)
  Sender: FDA-Public Use
  Company Number: US-PFIZER INC-2019033576

PATIENT
  Age: 27 Year
  Sex: Female
  Weight: 79 kg

DRUGS (2)
  1. XELJANZ XR [Suspect]
     Active Substance: TOFACITINIB CITRATE
     Dosage: 11 MG, DAILY
     Route: 048
  2. VPRIV [Concomitant]
     Active Substance: VELAGLUCERASE ALFA
     Dosage: UNK

REACTIONS (3)
  - Joint instability [Unknown]
  - Fall [Unknown]
  - Radius fracture [Unknown]

NARRATIVE: CASE EVENT DATE: 20190113
